FAERS Safety Report 23380619 (Version 2)
Quarter: 2024Q1

REPORT INFORMATION
  Report Type: Other
  Country: US (occurrence: None)
  Receive Date: 20240109
  Receipt Date: 20240131
  Transmission Date: 20240410
  Serious: Yes (Hospitalization)
  Sender: FDA-Public Use
  Company Number: US-ROCHE-2526738

PATIENT
  Age: 73 Year
  Sex: Female
  Weight: 69.916 kg

DRUGS (20)
  1. OCREVUS [Suspect]
     Active Substance: OCRELIZUMAB
     Indication: Relapsing-remitting multiple sclerosis
     Dosage: DATE OF TREATMENT: 05/FEB/2019 AND13/JUL/2023?NEXT INFUSION 17/JAN/2024
     Route: 042
     Dates: start: 201801
  2. ZANAFLEX [Concomitant]
     Active Substance: TIZANIDINE HYDROCHLORIDE
     Indication: Muscle relaxant therapy
  3. GLYCOPYRROLATE [Concomitant]
     Active Substance: GLYCOPYRROLATE
  4. LYRICA [Concomitant]
     Active Substance: PREGABALIN
  5. GABAPENTIN [Concomitant]
     Active Substance: GABAPENTIN
  6. HYDROCODONE [Concomitant]
     Active Substance: HYDROCODONE
  7. XANAX [Concomitant]
     Active Substance: ALPRAZOLAM
  8. TRAMADOL [Concomitant]
     Active Substance: TRAMADOL\TRAMADOL HYDROCHLORIDE
  9. DIPHENOXYLATE [Concomitant]
     Active Substance: DIPHENOXYLATE
  10. ATROPINE [Concomitant]
     Active Substance: ATROPINE\ATROPINE SULFATE
  11. ZOLPIDEM [Concomitant]
     Active Substance: ZOLPIDEM TARTRATE
     Indication: Insomnia
  12. SYNTHROID [Concomitant]
     Active Substance: LEVOTHYROXINE SODIUM
  13. PROLIA [Concomitant]
     Active Substance: DENOSUMAB
     Indication: Osteoporosis
  14. ENOXAPARIN SODIUM [Concomitant]
     Active Substance: ENOXAPARIN SODIUM
  15. LEVOTHYROXINE [Concomitant]
     Active Substance: LEVOTHYROXINE\LEVOTHYROXINE SODIUM
  16. AMLODIPINE [Concomitant]
     Active Substance: AMLODIPINE BESYLATE
  17. ERGOCALCIFEROL [Concomitant]
     Active Substance: ERGOCALCIFEROL
  18. FLONASE [Concomitant]
     Active Substance: FLUTICASONE PROPIONATE
  19. PANTOPRAZOLE [Concomitant]
     Active Substance: PANTOPRAZOLE
  20. PROMETHAZINE [Concomitant]
     Active Substance: PROMETHAZINE HYDROCHLORIDE

REACTIONS (9)
  - Fatigue [Not Recovered/Not Resolved]
  - Limb discomfort [Recovered/Resolved]
  - Asthenia [Not Recovered/Not Resolved]
  - Thrombosis [Not Recovered/Not Resolved]
  - Pneumonia [Recovered/Resolved]
  - Sinusitis [Recovered/Resolved]
  - Blood sodium decreased [Not Recovered/Not Resolved]
  - Nausea [Recovered/Resolved]
  - COVID-19 [Not Recovered/Not Resolved]

NARRATIVE: CASE EVENT DATE: 20191101
